FAERS Safety Report 10484656 (Version 1)
Quarter: 2014Q3

REPORT INFORMATION
  Report Type: Spontaneous
  Country: US (occurrence: None)
  Receive Date: 20140926
  Receipt Date: 20140926
  Transmission Date: 20150326
  Serious: Yes (Other)
  Sender: FDA-Public Use
  Company Number: 2014COV00119

PATIENT

DRUGS (4)
  1. UNSPECIFIED CORTICOSTEROIDS [Concomitant]
  2. HYDROXYCHLOROQUINE [Suspect]
     Active Substance: HYDROXYCHLOROQUINE
     Indication: GLIOBLASTOMA MULTIFORME
     Route: 048
  3. TEMOZOLOMIDE (TEMOZOLOMIDE) [Suspect]
     Active Substance: TEMOZOLOMIDE
     Indication: GLIOBLASTOMA MULTIFORME
     Route: 048
  4. SULFAMETHOXAZOLE AND TRIMETHOPRIM [Concomitant]
     Active Substance: SULFAMETHOXAZOLE\TRIMETHOPRIM

REACTIONS (5)
  - Neutropenia [None]
  - Bone marrow failure [None]
  - Thrombocytopenia [None]
  - Sepsis [None]
  - Toxicity to various agents [None]
